FAERS Safety Report 7066914-1 (Version None)
Quarter: 2010Q4

REPORT INFORMATION
  Report Type: 
  Country: None (occurrence: None)
  Receive Date: 20101028
  Receipt Date: 20101020
  Transmission Date: 20110411
  Serious: Yes (Hospitalization)
  Sender: FDA-Public Use
  Company Number: US-BIOGENIDEC-2010BI032812

PATIENT
  Age: 56 Year
  Sex: Male

DRUGS (6)
  1. AVONEX [Suspect]
     Indication: MULTIPLE SCLEROSIS
     Route: 030
     Dates: start: 19980101
  2. AVONEX [Suspect]
     Indication: HYPOAESTHESIA
     Route: 030
     Dates: start: 19980101
  3. AVONEX [Suspect]
     Route: 030
  4. AVONEX [Suspect]
     Route: 030
  5. AVONEX [Suspect]
     Route: 030
  6. AVONEX [Suspect]
     Route: 030

REACTIONS (16)
  - ARTHRITIS [None]
  - ARTHROPATHY [None]
  - BLOOD CHOLESTEROL INCREASED [None]
  - COGNITIVE DISORDER [None]
  - CONTUSION [None]
  - FALL [None]
  - FOOT FRACTURE [None]
  - HYPERSOMNIA [None]
  - HYPERTENSION [None]
  - HYPOAESTHESIA [None]
  - MUSCULAR WEAKNESS [None]
  - OEDEMA PERIPHERAL [None]
  - OPTIC NEURITIS [None]
  - OSTEOPOROSIS [None]
  - SKELETAL INJURY [None]
  - VEIN DISORDER [None]
